FAERS Safety Report 12697808 (Version 1)
Quarter: 2016Q3

REPORT INFORMATION
  Report Type: Spontaneous
  Country: US (occurrence: None)
  Receive Date: 20160829
  Receipt Date: 20160829
  Transmission Date: 20161109
  Serious: Yes (Life-Threatening, Hospitalization)
  Sender: FDA-Public Use
  Company Number: None

PATIENT
  Age: 74 Year
  Sex: Male
  Weight: 84 kg

DRUGS (2)
  1. CETUXIMAB, 2MG/ML [Suspect]
     Active Substance: CETUXIMAB
     Indication: MASS
     Route: 041
  2. PREMEDICATED WITH DIPHENHYDRAMINE [Concomitant]

REACTIONS (3)
  - Unresponsive to stimuli [None]
  - Dizziness [None]
  - Burning sensation [None]

NARRATIVE: CASE EVENT DATE: 20160719
